FAERS Safety Report 4683542-3 (Version None)
Quarter: 2005Q2

REPORT INFORMATION
  Report Type: 
  Country: None (occurrence: None)
  Receive Date: 20050606
  Receipt Date: 20050606
  Transmission Date: 20051028
  Serious: Yes (Disabling, Other)
  Sender: FDA-Public Use
  Company Number: None

PATIENT
  Age: 50 Year
  Sex: Female
  Weight: 49.8957 kg

DRUGS (1)
  1. LEVAQUIN [Suspect]
     Indication: BRONCHITIS
     Dosage: 750MG     PO
     Route: 048
     Dates: start: 20041213, end: 20041218

REACTIONS (5)
  - ARTHRALGIA [None]
  - BACK PAIN [None]
  - HEADACHE [None]
  - NECK PAIN [None]
  - SHOULDER PAIN [None]
